FAERS Safety Report 8335347-X (Version None)
Quarter: 2012Q2

REPORT INFORMATION
  Report Type: 
  Country: None (occurrence: None)
  Receive Date: 20120503
  Receipt Date: 20120430
  Transmission Date: 20120825
  Serious: Yes (Hospitalization, Other)
  Sender: FDA-Public Use
  Company Number: DK-AMGEN-DNKSP2012019206

PATIENT
  Age: 65 Year
  Sex: Female
  Weight: 74 kg

DRUGS (20)
  1. PEGFILGRASTIM [Suspect]
     Indication: MALIGNANT LYMPHOID NEOPLASM
     Dosage: 6 MG, UNK
     Route: 058
     Dates: start: 20120210
  2. PREDNISONE TAB [Concomitant]
     Indication: MALIGNANT LYMPHOID NEOPLASM
     Dosage: 500 MG, UNK
     Route: 048
     Dates: start: 20120207
  3. ONDANSETRON [Concomitant]
     Indication: NAUSEA
     Dosage: 8 MG, UNK
     Route: 048
     Dates: start: 20120207, end: 20120208
  4. CLEMASTINE FUMARATE [Concomitant]
     Dosage: 2 MG, UNK
     Route: 048
     Dates: start: 20120213, end: 20120213
  5. CYCLOPHOSPHAMIDE [Concomitant]
     Indication: MALIGNANT LYMPHOID NEOPLASM
     Dosage: 1400 MG, UNK
     Route: 042
     Dates: start: 20120207
  6. ACYCLOVIR [Concomitant]
     Indication: INFECTION
     Dosage: 400 MG, UNK
     Route: 048
     Dates: start: 20120207
  7. ACETAMINOPHEN [Concomitant]
     Dosage: 1000 MG, UNK
     Route: 048
     Dates: start: 20120220, end: 20120220
  8. CLEMASTINE FUMARATE [Concomitant]
     Dosage: 2 MG, UNK
     Route: 048
     Dates: start: 20120227, end: 20120227
  9. ACETAMINOPHEN [Concomitant]
     Dosage: 1000 MG, UNK
     Route: 048
     Dates: start: 20120227, end: 20120227
  10. DOXORUBICIN HCL [Concomitant]
     Indication: MALIGNANT LYMPHOID NEOPLASM
     Dosage: 90 MG, UNK
     Route: 042
     Dates: start: 20120207
  11. LANSOPRAZOLE [Concomitant]
     Dosage: 30 MG, UNK
     Route: 048
     Dates: start: 20120113, end: 20120305
  12. VINCRISTINE SULFATE [Concomitant]
     Indication: MALIGNANT LYMPHOID NEOPLASM
     Dosage: 2 MG, UNK
     Route: 042
     Dates: start: 20120207
  13. RITUXIMAB [Concomitant]
     Indication: MALIGNANT LYMPHOID NEOPLASM
     Dosage: 693 MG, UNK
     Route: 042
     Dates: start: 20120207
  14. SULFAMETHIZOLE TAB [Concomitant]
     Indication: INFECTION
     Dosage: UNK
     Dates: start: 20120207
  15. ALLOPURINOL [Concomitant]
     Dosage: 300 MG, UNK
     Route: 048
     Dates: start: 20120207
  16. BACTRIM [Concomitant]
     Indication: INFECTION
     Dosage: UNK
     Route: 048
     Dates: start: 20120207
  17. CLEMASTINE FUMARATE [Concomitant]
     Dosage: 2 MG, UNK
     Route: 048
     Dates: start: 20120207, end: 20120207
  18. CLEMASTINE FUMARATE [Concomitant]
     Dosage: 2 MG, UNK
     Route: 048
     Dates: start: 20120220, end: 20120220
  19. ACETAMINOPHEN [Concomitant]
     Indication: PAIN
     Dosage: 1000 MG, UNK
     Route: 048
     Dates: start: 20120213, end: 20120213
  20. ACETAMINOPHEN [Concomitant]
     Dosage: 100 MG, UNK
     Route: 048
     Dates: start: 20120207, end: 20120207

REACTIONS (5)
  - ARTHRALGIA [None]
  - PULMONARY EMBOLISM [None]
  - DYSPNOEA [None]
  - NECK PAIN [None]
  - BACK PAIN [None]
